FAERS Safety Report 25104446 (Version 1)
Quarter: 2025Q1

REPORT INFORMATION
  Report Type: Spontaneous
  Country: US (occurrence: US)
  Receive Date: 20250321
  Receipt Date: 20250321
  Transmission Date: 20250409
  Serious: Yes (Hospitalization)
  Sender: MYLAN
  Company Number: US-MYLANLABS-2025M1021678

PATIENT
  Age: 53 Year
  Sex: Male

DRUGS (3)
  1. ESMOLOL HYDROCHLORIDE [Suspect]
     Active Substance: ESMOLOL HYDROCHLORIDE
     Indication: Hypertension
  2. LISINOPRIL [4]
     Active Substance: LISINOPRIL
     Indication: Hypertension
  3. ATORVASTATIN [Concomitant]
     Active Substance: ATORVASTATIN
     Indication: Hyperlipidaemia

REACTIONS (1)
  - Atrioventricular block complete [Unknown]
